FAERS Safety Report 6446507-7 (Version None)
Quarter: 2009Q4

REPORT INFORMATION
  Report Type: 
  Country: None (occurrence: None)
  Receive Date: 20091119
  Receipt Date: 20091109
  Transmission Date: 20100525
  Serious: Yes (Other)
  Sender: FDA-Public Use
  Company Number: US-ROCHE-649882

PATIENT
  Sex: Female
  Weight: 63 kg

DRUGS (4)
  1. ACCUTANE [Suspect]
     Indication: ACNE
     Route: 048
     Dates: start: 19910401, end: 19910909
  2. ACCUTANE [Suspect]
     Route: 048
     Dates: start: 19980123, end: 19980223
  3. CLEOCIN [Concomitant]
     Indication: ACNE
  4. ERYTHROMYCIN [Concomitant]
     Indication: ACNE

REACTIONS (10)
  - ANXIETY [None]
  - DEPRESSION [None]
  - DRY SKIN [None]
  - EMOTIONAL DISORDER [None]
  - HYPERTRIGLYCERIDAEMIA [None]
  - INFLAMMATORY BOWEL DISEASE [None]
  - POST INFLAMMATORY PIGMENTATION CHANGE [None]
  - PROCTITIS ULCERATIVE [None]
  - STOMATITIS [None]
  - SUICIDAL IDEATION [None]
